FAERS Safety Report 15633249 (Version 1)
Quarter: 2018Q4

REPORT INFORMATION
  Report Type: Spontaneous
  Country: GB (occurrence: GB)
  Receive Date: 20181119
  Receipt Date: 20181119
  Transmission Date: 20190205
  Serious: Yes (Other)
  Sender: FDA-Public Use
  Company Number: GB-JNJFOC-20181117909

PATIENT
  Age: 78 Year
  Sex: Female
  Weight: 83 kg

DRUGS (9)
  1. CLOTRIMAZOLE. [Concomitant]
     Active Substance: CLOTRIMAZOLE
     Route: 065
  2. HYDROCORTISONE BUTYRATE. [Concomitant]
     Active Substance: HYDROCORTISONE BUTYRATE
     Route: 065
  3. PREDNISOLONE. [Concomitant]
     Active Substance: PREDNISOLONE
     Route: 065
     Dates: start: 20180921
  4. BECLOMETASONE DIPROPIONATE [Concomitant]
     Active Substance: BECLOMETHASONE DIPROPIONATE
     Route: 065
     Dates: start: 20180406
  5. SALAMOL [Concomitant]
     Active Substance: ALBUTEROL
     Route: 065
     Dates: start: 20180712
  6. AMOXICILLIN. [Concomitant]
     Active Substance: AMOXICILLIN
     Route: 065
     Dates: start: 20180921
  7. LANSOPRAZOLE. [Concomitant]
     Active Substance: LANSOPRAZOLE
     Route: 065
     Dates: start: 20180709
  8. XARELTO [Suspect]
     Active Substance: RIVAROXABAN
     Indication: PRODUCT USED FOR UNKNOWN INDICATION
     Route: 048
  9. LOSARTAN. [Concomitant]
     Active Substance: LOSARTAN
     Route: 065
     Dates: start: 20180406

REACTIONS (3)
  - Skin exfoliation [Not Recovered/Not Resolved]
  - Dry skin [Not Recovered/Not Resolved]
  - Alopecia [Not Recovered/Not Resolved]
